FAERS Safety Report 7150795-1 (Version None)
Quarter: 2010Q4

REPORT INFORMATION
  Report Type: 
  Country: None (occurrence: None)
  Receive Date: 20101210
  Receipt Date: 20101130
  Transmission Date: 20110411
  Serious: Yes (Life-Threatening, Hospitalization)
  Sender: FDA-Public Use
  Company Number: FR-SANOFI-AVENTIS-2010SA072619

PATIENT
  Age: 60 Year
  Sex: Male

DRUGS (2)
  1. MULTAQ [Suspect]
     Route: 048
     Dates: start: 20101101, end: 20101101
  2. MULTAQ [Suspect]
     Route: 048
     Dates: start: 20101101, end: 20101101

REACTIONS (3)
  - ACUTE RESPIRATORY FAILURE [None]
  - DYSPNOEA [None]
  - HYPERSENSITIVITY [None]
